FAERS Safety Report 7049020-1 (Version None)
Quarter: 2010Q4

REPORT INFORMATION
  Report Type: 
  Country: None (occurrence: None)
  Receive Date: 20101018
  Receipt Date: 20101014
  Transmission Date: 20110411
  Serious: Yes (Other)
  Sender: FDA-Public Use
  Company Number: DE-BRISTOL-MYERS SQUIBB COMPANY-15337603

PATIENT
  Age: 80 Year
  Sex: Male

DRUGS (3)
  1. MITOMYCIN [Suspect]
  2. FLUOROURACIL [Suspect]
     Dosage: 5-DAY CONTINUOUS INFUSION
  3. RADIOTHERAPY [Suspect]
     Dosage: 1DF:50 GY (MON-FRI)

REACTIONS (2)
  - DERMATITIS [None]
  - MUCOSAL INFLAMMATION [None]
